FAERS Safety Report 13182988 (Version 1)
Quarter: 2017Q1

REPORT INFORMATION
  Report Type: Spontaneous
  Country: US (occurrence: US)
  Receive Date: 20170202
  Receipt Date: 20170202
  Transmission Date: 20170428
  Serious: No
  Sender: FDA-Public Use
  Company Number: None

PATIENT
  Age: 70 Year
  Sex: Male

DRUGS (1)
  1. METFORMIN [Suspect]
     Active Substance: METFORMIN HYDROCHLORIDE
     Dosage: TAKE ONE TABLET AT BREAKFAST AND ONE-HALF (1/2) TABLET AT SUPPER BID ORAL
     Route: 048

REACTIONS (2)
  - Drug ineffective [None]
  - Blood glucose increased [None]

NARRATIVE: CASE EVENT DATE: 20170128
